FAERS Safety Report 7545521-8 (Version None)
Quarter: 2011Q2

REPORT INFORMATION
  Report Type: 
  Country: None (occurrence: None)
  Receive Date: 20110614
  Receipt Date: 20110530
  Transmission Date: 20111010
  Serious: Yes (Death, Hospitalization)
  Sender: FDA-Public Use
  Company Number: FR-CELGENEUS-056-C5013-11020039

PATIENT
  Sex: Male
  Weight: 70 kg

DRUGS (23)
  1. POTASSIUM CHLORIDE [Concomitant]
     Indication: PROPHYLAXIS
     Dosage: 600 MILLIGRAM
     Route: 048
     Dates: start: 20100901, end: 20110130
  2. THALIDOMIDE [Suspect]
     Dosage: 100 MILLIGRAM
     Route: 048
     Dates: start: 20110324, end: 20110325
  3. PREDNISONE [Suspect]
     Indication: MULTIPLE MYELOMA
     Dosage: 135 MILLIGRAM
     Route: 065
     Dates: start: 20101118
  4. PREDNISONE [Suspect]
     Dosage: 140 MILLIGRAM
     Route: 065
     Dates: start: 20110324, end: 20110325
  5. PERINDOPRIL ERBUMINE [Concomitant]
     Dosage: 10 MILLIGRAM
     Route: 048
     Dates: start: 20101105
  6. FUROSEMIDE [Concomitant]
     Dosage: 60 MILLIGRAM
     Route: 048
     Dates: start: 20110131
  7. INNOHEP [Concomitant]
     Dosage: .8 MILLILITER
     Route: 058
     Dates: start: 20110319
  8. THALIDOMIDE [Suspect]
     Dosage: 100 MILLIGRAM
     Route: 048
     Dates: start: 20101230
  9. MELPHALAN HYDROCHLORIDE [Suspect]
     Indication: MULTIPLE MYELOMA
     Dosage: 6 MILLIGRAM
     Route: 065
     Dates: start: 20101118
  10. PREDNISONE [Suspect]
     Dosage: 140 MILLIGRAM
     Route: 065
     Dates: start: 20101230, end: 20110102
  11. BISOPROLOL FUMARATE [Concomitant]
     Dosage: 5 MILLIGRAM
     Route: 048
     Dates: start: 20110131
  12. BISOPROLOL FUMARATE [Concomitant]
     Dosage: 10 MILLIGRAM
     Route: 048
     Dates: start: 20100901, end: 20110130
  13. MELPHALAN HYDROCHLORIDE [Suspect]
     Dosage: 8 MILLIGRAM
     Route: 065
     Dates: start: 20110324, end: 20110325
  14. ASPIRIN [Concomitant]
     Indication: THROMBOSIS PROPHYLAXIS
     Dosage: 75 MILLIGRAM
     Route: 048
     Dates: start: 20100501, end: 20110303
  15. FUROSEMIDE [Concomitant]
     Dosage: 80 MILLIGRAM
     Route: 048
     Dates: start: 20100901, end: 20101221
  16. FUROSEMIDE [Concomitant]
     Dosage: 120 MILLIGRAM
     Route: 048
     Dates: start: 20101222, end: 20110130
  17. INNOHEP [Concomitant]
     Indication: DEEP VEIN THROMBOSIS
     Dosage: .6 MILLILITER
     Route: 058
     Dates: start: 20110303, end: 20110318
  18. EPREX [Concomitant]
     Dosage: 5714.2857 IU (INTERNATIONAL UNIT)
     Route: 058
     Dates: start: 20110210
  19. THALIDOMIDE [Suspect]
     Indication: MULTIPLE MYELOMA
     Dosage: 100 MILLIGRAM
     Route: 048
     Dates: start: 20101118
  20. CLASTOBAN [Concomitant]
     Indication: PROPHYLAXIS
     Dosage: 1600 MILLIGRAM
     Route: 048
     Dates: start: 20101117
  21. MELPHALAN HYDROCHLORIDE [Suspect]
     Dosage: 8 MILLIGRAM
     Route: 065
     Dates: start: 20101230, end: 20110102
  22. CLOPIDOGREL [Concomitant]
     Indication: THROMBOSIS PROPHYLAXIS
     Dosage: 75 MILLIGRAM
     Route: 048
     Dates: start: 20100901
  23. CRESTOR [Concomitant]
     Indication: PROPHYLAXIS
     Dosage: 10 MILLIGRAM
     Route: 048
     Dates: start: 20100901

REACTIONS (2)
  - CORONARY ARTERY INSUFFICIENCY [None]
  - MYOCARDIAL INFARCTION [None]
